FAERS Safety Report 22953374 (Version 3)
Quarter: 2023Q4

REPORT INFORMATION
  Report Type: Spontaneous
  Country: US (occurrence: US)
  Receive Date: 20230918
  Receipt Date: 20231026
  Transmission Date: 20240110
  Serious: No
  Sender: FDA-Public Use
  Company Number: US-ELI_LILLY_AND_COMPANY-US202309007372

PATIENT
  Sex: Female
  Weight: 100.23 kg

DRUGS (4)
  1. EMGALITY [Suspect]
     Active Substance: GALCANEZUMAB-GNLM
     Indication: Migraine
     Dosage: 120 MG, OTHER (AS A LOADING DOSE)
     Route: 065
     Dates: start: 20230915
  2. EMGALITY [Suspect]
     Active Substance: GALCANEZUMAB-GNLM
     Indication: Migraine
     Dosage: 120 MG, OTHER (AS A LOADING DOSE)
     Route: 065
     Dates: start: 20230915
  3. EMGALITY [Suspect]
     Active Substance: GALCANEZUMAB-GNLM
     Dosage: 120 MG, OTHER (AS A LOADING DOSE)
     Route: 065
     Dates: start: 20230915
  4. EMGALITY [Suspect]
     Active Substance: GALCANEZUMAB-GNLM
     Dosage: 120 MG, OTHER (AS A LOADING DOSE)
     Route: 065
     Dates: start: 20230915

REACTIONS (2)
  - Blood pressure increased [Unknown]
  - Underdose [Unknown]
